FAERS Safety Report 5281657-2 (Version None)
Quarter: 2007Q1

REPORT INFORMATION
  Report Type: 
  Country: None (occurrence: None)
  Receive Date: 20061215
  Receipt Date: 20051026
  Transmission Date: 20070707
  Serious: Yes (Life-Threatening, Other)
  Sender: FDA-Public Use
  Company Number: HQWYE274027OCT05

PATIENT
  Age: 40 Year
  Sex: Female
  Weight: 67.19 kg

DRUGS (5)
  1. EFFEXOR XR [Suspect]
     Indication: DEPRESSION
     Dosage: 75 MG 1X PER 1 DAY
     Dates: start: 20041001, end: 20050901
  2. EFFEXOR XR [Suspect]
     Indication: PAIN
     Dosage: 75 MG 1X PER 1 DAY
     Dates: start: 20041001, end: 20050901
  3. ZYRTEC [Concomitant]
  4. TAPAZOLE [Concomitant]
  5. BISOPROLOL FUMARATE [Concomitant]

REACTIONS (1)
  - VENTRICULAR TACHYCARDIA [None]
